FAERS Safety Report 5404637-2 (Version None)
Quarter: 2007Q3

REPORT INFORMATION
  Report Type: 
  Country: None (occurrence: None)
  Receive Date: 20070802
  Receipt Date: 20070731
  Transmission Date: 20080115
  Serious: Yes (Hospitalization, Other)
  Sender: FDA-Public Use
  Company Number: US-MERCK-0609USA00785

PATIENT
  Age: 55 Year
  Sex: Female
  Weight: 83 kg

DRUGS (2)
  1. FOSAMAX [Suspect]
     Route: 048
     Dates: start: 20000101, end: 20060101
  2. FOSAMAX PLUS D [Concomitant]
     Route: 048
     Dates: start: 20070201

REACTIONS (9)
  - CELLULITIS [None]
  - CERVICITIS TRICHOMONAL [None]
  - DEPRESSION [None]
  - GENITAL LESION [None]
  - MIGRAINE [None]
  - OSTEOARTHRITIS [None]
  - OSTEONECROSIS [None]
  - PALPITATIONS [None]
  - TOOTH DISORDER [None]
